FAERS Safety Report 7943922-7 (Version None)
Quarter: 2011Q4

REPORT INFORMATION
  Report Type: 
  Country: None (occurrence: None)
  Receive Date: 20111128
  Receipt Date: 20111117
  Transmission Date: 20120403
  Serious: Yes (Disabling)
  Sender: FDA-Public Use
  Company Number: BR-ASTRAZENECA-2011SE70256

PATIENT
  Age: 79 Year
  Sex: Female

DRUGS (4)
  1. LEVOID [Concomitant]
     Route: 048
  2. LEVOID [Concomitant]
     Route: 048
  3. ATACAND HCT [Suspect]
     Indication: HYPERTENSION
     Dosage: 8/12.5 MG OD
     Route: 048
  4. CRESTOR [Suspect]
     Indication: BLOOD CHOLESTEROL INCREASED
     Route: 048

REACTIONS (5)
  - LABYRINTHITIS [None]
  - VOMITING [None]
  - BLOOD CHOLESTEROL INCREASED [None]
  - DEAFNESS [None]
  - THYROID NEOPLASM [None]
